FAERS Safety Report 23015008 (Version 2)
Quarter: 2023Q4

REPORT INFORMATION
  Report Type: Spontaneous
  Country: SK (occurrence: SK)
  Receive Date: 20231002
  Receipt Date: 20231024
  Transmission Date: 20240110
  Serious: Yes (Other)
  Sender: FDA-Public Use
  Company Number: SK-ACRAF SpA-2023-032040

PATIENT

DRUGS (1)
  1. XCOPRI [Suspect]
     Active Substance: CENOBAMATE
     Indication: Partial seizures
     Dosage: 12.5 MILLIGRAM
     Route: 048

REACTIONS (3)
  - Urinary retention [Recovered/Resolved]
  - Eye oedema [Recovered/Resolved]
  - Lymphadenopathy [Recovered/Resolved]
